FAERS Safety Report 15741012 (Version 3)
Quarter: 2019Q1

REPORT INFORMATION
  Report Type: Spontaneous
  Country: US (occurrence: US)
  Receive Date: 20181219
  Receipt Date: 20190121
  Transmission Date: 20190417
  Serious: Yes (Other)
  Sender: FDA-Public Use
  Company Number: US-SAKK-2018SA343944AA

PATIENT
  Age: 59 Year
  Sex: Male
  Weight: 59 kg

DRUGS (1)
  1. DUPIXENT [Suspect]
     Active Substance: DUPILUMAB
     Indication: DERMATITIS ATOPIC
     Dosage: 300 MG, QOW
     Route: 058
     Dates: start: 201801

REACTIONS (11)
  - Eczema [Unknown]
  - Erythema [Unknown]
  - Ocular hyperaemia [Unknown]
  - Fall [Unknown]
  - Dry eye [Unknown]
  - Lacrimation increased [Unknown]
  - Eyelid margin crusting [Unknown]
  - Hip fracture [Unknown]
  - Eye pruritus [Unknown]
  - Skin exfoliation [Unknown]
  - Vision blurred [Unknown]

NARRATIVE: CASE EVENT DATE: 2018
